FAERS Safety Report 6831196-X (Version None)
Quarter: 2010Q3

REPORT INFORMATION
  Report Type: 
  Country: None (occurrence: None)
  Receive Date: 20100709
  Receipt Date: 20100709
  Transmission Date: 20110219
  Serious: Yes (Other)
  Sender: FDA-Public Use
  Company Number: None

PATIENT
  Age: 48 Year
  Sex: Female
  Weight: 63.5036 kg

DRUGS (10)
  1. AMLODIPINE [Suspect]
     Indication: RAYNAUD'S PHENOMENON
     Dosage: 10 MG ONCE DAILY PO
     Route: 048
     Dates: start: 20100331, end: 20100708
  2. PRILOSEC [Concomitant]
  3. KLONOPIN [Concomitant]
  4. FERROUS SULFATE [Concomitant]
  5. FLEXERILL [Concomitant]
  6. KETAMINE [Concomitant]
  7. VITAMIN D3 [Concomitant]
  8. CALCIUM [Concomitant]
  9. VITAMIN C [Concomitant]
  10. ONCE-A-DAY MULTI-VITAMIN [Concomitant]

REACTIONS (4)
  - DEPRESSION [None]
  - FATIGUE [None]
  - PALPITATIONS [None]
  - PARAESTHESIA [None]
